FAERS Safety Report 22659616 (Version 1)
Quarter: 2023Q2

REPORT INFORMATION
  Report Type: Spontaneous
  Country: US (occurrence: None)
  Receive Date: 20230630
  Receipt Date: 20230630
  Transmission Date: 20230722
  Serious: Yes (Other)
  Sender: FDA-Public Use
  Company Number: None

PATIENT
  Sex: Female

DRUGS (4)
  1. CIMZIA [Suspect]
     Active Substance: CERTOLIZUMAB PEGOL
     Indication: Rheumatoid arthritis
     Dosage: 2 X 200 MG/ML SUBCUTANEOUS??ADMINISTER 300 MG UNDER THE SKIN (SUBCUTANEOUS INJECTION)  ONCE A MONTH
     Route: 058
     Dates: start: 20230406
  2. CALCIUM [Concomitant]
     Active Substance: CALCIUM
  3. RINVOQ [Concomitant]
     Active Substance: UPADACITINIB
  4. VITAMIN E [Concomitant]
     Active Substance: .ALPHA.-TOCOPHEROL

REACTIONS (1)
  - Rash erythematous [None]
